FAERS Safety Report 4958942-4 (Version None)
Quarter: 2006Q1

REPORT INFORMATION
  Report Type: 
  Country: None (occurrence: None)
  Receive Date: 20060324
  Receipt Date: 20060317
  Transmission Date: 20060701
  Serious: Yes (Hospitalization, Other)
  Sender: FDA-Public Use
  Company Number: HQWYE374317MAR06

PATIENT
  Age: 77 Year
  Sex: Female

DRUGS (8)
  1. EFFEXOR XR [Suspect]
     Indication: DEPRESSION
     Dosage: 150 MG 1X PER 1 DAY
  2. CITALOPRAM (CITALOPRAM,) [Suspect]
     Indication: ANXIETY
     Dosage: 20 MG 1X PER 1 DAY
  3. TRAZODONE HCL [Suspect]
     Indication: INSOMNIA
     Dosage: 50 MG 1X PER 1 DAY
  4. TRAZODONE HCL [Suspect]
     Indication: RESTLESSNESS
     Dosage: 50 MG 1X PER 1 DAY
  5. METOPROLOL (METOPROLOL) [Concomitant]
  6. DIGOXIN [Concomitant]
  7. COUMADIN [Concomitant]
  8. OMEPRAZOLE [Concomitant]

REACTIONS (8)
  - BLOOD PRESSURE SYSTOLIC INCREASED [None]
  - DELIRIUM [None]
  - DIFFICULTY IN WALKING [None]
  - DISORIENTATION [None]
  - INSOMNIA [None]
  - ORAL INTAKE REDUCED [None]
  - SEPSIS [None]
  - SEROTONIN SYNDROME [None]
